FAERS Safety Report 6546061-5 (Version None)
Quarter: 2010Q1

REPORT INFORMATION
  Report Type: 
  Country: None (occurrence: None)
  Receive Date: 20100119
  Receipt Date: 20100104
  Transmission Date: 20100710
  Serious: Yes (Death, Other)
  Sender: FDA-Public Use
  Company Number: AUR-APL-2010-00089

PATIENT
  Age: 30 Year
  Sex: Male

DRUGS (5)
  1. CEFDINIR [Suspect]
     Dosage: ORAL
     Route: 048
  2. HYDROXYZINE PAMOATE [Suspect]
     Dosage: ORAL
     Route: 048
  3. PREDNISONE [Suspect]
     Dosage: ORAL
     Route: 048
  4. ACETYLSALICYLIC ACID [Suspect]
     Dosage: ORAL
     Route: 048
  5. IBUPROFEN [Suspect]
     Dosage: ORAL
     Route: 048

REACTIONS (3)
  - COMPLETED SUICIDE [None]
  - DRUG TOXICITY [None]
  - INTENTIONAL DRUG MISUSE [None]
